FAERS Safety Report 20368782 (Version 1)
Quarter: 2022Q1

REPORT INFORMATION
  Report Type: Spontaneous
  Country: ES (occurrence: ES)
  Receive Date: 20220124
  Receipt Date: 20220124
  Transmission Date: 20220423
  Serious: Yes (Life-Threatening, Hospitalization)
  Sender: FDA-Public Use
  Company Number: None

PATIENT
  Age: 70 Year
  Sex: Male

DRUGS (4)
  1. ARGATROBAN [Suspect]
     Active Substance: ARGATROBAN
     Indication: Anticoagulant therapy
     Route: 041
     Dates: start: 20211102, end: 20211112
  2. DAPTOMYCIN [Suspect]
     Active Substance: DAPTOMYCIN
     Indication: Pneumonia necrotising
     Route: 042
     Dates: start: 20211020, end: 20211108
  3. ANIDULAFUNGIN [Suspect]
     Active Substance: ANIDULAFUNGIN
     Indication: Pneumonia necrotising
     Route: 041
     Dates: start: 20211020, end: 20211103
  4. MEROPENEM [Suspect]
     Active Substance: MEROPENEM
     Indication: Pneumonia necrotising
     Route: 042
     Dates: start: 20211020, end: 20211110

REACTIONS (1)
  - Agranulocytosis [Recovered/Resolved]

NARRATIVE: CASE EVENT DATE: 20211107
